FAERS Safety Report 5114916-4 (Version None)
Quarter: 2006Q3

REPORT INFORMATION
  Report Type: 
  Country: None (occurrence: None)
  Receive Date: 20060922
  Receipt Date: 20060911
  Transmission Date: 20061208
  Serious: Yes (Hospitalization)
  Sender: FDA-Public Use
  Company Number: APP200600254

PATIENT
  Age: 46 Year
  Sex: Male

DRUGS (2)
  1. FLUOROURACIL [Suspect]
     Indication: GASTRIC CANCER
     Dosage: 800 MG/M2 (800 MG/M2,CYCLE 2) , INTRAVENOUS
     Route: 042
     Dates: start: 20060803, end: 20060808
  2. CISPLATIN [Suspect]
     Indication: GASTRIC CANCER
     Dosage: 170 MG/M2 (170 MG/M2, CYCLE 2) , INTRAVENOUS
     Route: 042
     Dates: start: 20060803, end: 20060803

REACTIONS (6)
  - DEHYDRATION [None]
  - DIVERTICULITIS [None]
  - ELECTROCARDIOGRAM QT CORRECTED INTERVAL PROLONGED [None]
  - HYPOTENSION [None]
  - LOSS OF CONSCIOUSNESS [None]
  - SYNCOPE [None]
